FAERS Safety Report 6443628-X (Version None)
Quarter: 2009Q4

REPORT INFORMATION
  Report Type: 
  Country: None (occurrence: None)
  Receive Date: 20091117
  Receipt Date: 20091106
  Transmission Date: 20100525
  Serious: Yes (Hospitalization)
  Sender: FDA-Public Use
  Company Number: US-MYLANLABS-2009S1019165

PATIENT
  Age: 73 Year
  Sex: Female
  Weight: 68.04 kg

DRUGS (2)
  1. INDOMETHACIN [Suspect]
     Indication: ARTHRALGIA
     Route: 048
     Dates: start: 20090901, end: 20090901
  2. INDOMETHACIN [Suspect]
     Indication: INFLAMMATION
     Route: 048
     Dates: start: 20090901, end: 20090901

REACTIONS (6)
  - DRUG ERUPTION [None]
  - PAIN OF SKIN [None]
  - RASH ERYTHEMATOUS [None]
  - RASH PRURITIC [None]
  - URTICARIA [None]
  - WHITE BLOOD CELL COUNT INCREASED [None]
